FAERS Safety Report 9831453 (Version 2)
Quarter: 2014Q1

REPORT INFORMATION
  Report Type: Report from Study
  Country: CA (occurrence: CA)
  Receive Date: 20140121
  Receipt Date: 20140121
  Transmission Date: 20141002
  Serious: Yes (Hospitalization)
  Sender: FDA-Public Use
  Company Number: CA-BEH-2011028052

PATIENT
  Age: 61 Year
  Sex: Female

DRUGS (2)
  1. ZEMAIRA [Suspect]
     Indication: ALPHA-1 ANTI-TRYPSIN DEFICIENCY
     Route: 042
     Dates: start: 20100616
  2. ZEMAIRA [Suspect]
     Route: 042

REACTIONS (3)
  - Pneumonia [Recovered/Resolved with Sequelae]
  - Condition aggravated [Recovered/Resolved]
  - Bronchiectasis [Recovered/Resolved]
